FAERS Safety Report 6098620-4 (Version None)
Quarter: 2009Q1

REPORT INFORMATION
  Report Type: 
  Country: None (occurrence: None)
  Receive Date: 20090302
  Receipt Date: 20090119
  Transmission Date: 20090719
  Serious: Yes (Other)
  Sender: FDA-Public Use
  Company Number: US-BAYER-200911578GPV

PATIENT
  Age: 17 Year
  Sex: Male

DRUGS (1)
  1. HELIXATE FS [Suspect]
     Indication: FACTOR VIII DEFICIENCY
     Route: 042
     Dates: start: 20080901, end: 20090121

REACTIONS (1)
  - DRUG INEFFECTIVE [None]
